FAERS Safety Report 8581757-5 (Version None)
Quarter: 2012Q3

REPORT INFORMATION
  Report Type: 
  Country: None (occurrence: None)
  Receive Date: 20120809
  Receipt Date: 20120731
  Transmission Date: 20120928
  Serious: Yes (Other)
  Sender: FDA-Public Use
  Company Number: CA-JNJFOC-20120800724

PATIENT
  Sex: Female
  Weight: 85 kg

DRUGS (5)
  1. REMICADE [Suspect]
     Indication: PSORIATIC ARTHROPATHY
     Route: 042
     Dates: start: 20100323
  2. METHOTREXATE [Concomitant]
     Route: 065
  3. PANTOPRAZOLE SODIUM [Concomitant]
     Route: 065
  4. FOLIC ACID [Concomitant]
     Route: 065
  5. CALCIUM [Concomitant]
     Route: 065

REACTIONS (2)
  - EXOPHTHALMOS [None]
  - EYE HAEMORRHAGE [None]
